FAERS Safety Report 8180196-9 (Version None)
Quarter: 2012Q1

REPORT INFORMATION
  Report Type: 
  Country: None (occurrence: None)
  Receive Date: 20120302
  Receipt Date: 20120217
  Transmission Date: 20120608
  Serious: Yes (Disabling)
  Sender: FDA-Public Use
  Company Number: JP-FRI-1000028647

PATIENT
  Sex: Female

DRUGS (8)
  1. MEMANTINE [Suspect]
     Indication: BIPOLAR DISORDER
     Dosage: 10 MG
     Route: 048
  2. MEMANTINE [Suspect]
     Dosage: 15 MG
     Route: 048
  3. MEMANTINE [Suspect]
  4. AMOBAN [Concomitant]
     Dosage: 7.5 MG
     Route: 050
     Dates: start: 20090727
  5. INDERAL [Concomitant]
     Dosage: 10 MG
     Route: 050
  6. MEMANTINE [Suspect]
     Indication: DEMENTIA ALZHEIMER'S TYPE
     Dosage: 5 MG
     Route: 048
  7. MEMANTINE [Suspect]
     Dosage: 20 MG
     Route: 048
  8. DEPAKENE [Concomitant]
     Dosage: 1200 MG
     Route: 050
     Dates: start: 20090406

REACTIONS (1)
  - ABNORMAL BEHAVIOUR [None]
